FAERS Safety Report 18215301 (Version 1)
Quarter: 2020Q3

REPORT INFORMATION
  Report Type: Spontaneous
  Country: US (occurrence: US)
  Receive Date: 20200831
  Receipt Date: 20200831
  Transmission Date: 20201103
  Serious: No
  Sender: FDA-Public Use
  Company Number: US-ENDO PHARMACEUTICALS INC-2020-001856

PATIENT
  Age: 38 Year
  Sex: Male

DRUGS (2)
  1. BREVITAL SODIUM [Suspect]
     Active Substance: METHOHEXITAL SODIUM
     Dosage: 2 DOSES OF 100 MG EACH GIVEN THE SAME DAY
     Route: 065
     Dates: start: 20200212, end: 20200212
  2. BREVITAL SODIUM [Suspect]
     Active Substance: METHOHEXITAL SODIUM
     Indication: INDUCTION OF ANAESTHESIA
     Dosage: 100 MG, SINGLE
     Route: 065
     Dates: start: 20200210, end: 20200210

REACTIONS (2)
  - Drug ineffective [Unknown]
  - Unwanted awareness during anaesthesia [Recovered/Resolved]

NARRATIVE: CASE EVENT DATE: 20200210
